FAERS Safety Report 9669146 (Version 1)
Quarter: 2013Q4

REPORT INFORMATION
  Report Type: Spontaneous
  Country: US (occurrence: US)
  Receive Date: 20131105
  Receipt Date: 20131105
  Transmission Date: 20140711
  Serious: Yes (Hospitalization, Disabling)
  Sender: FDA-Public Use
  Company Number: US-PERRIGO-13US011040

PATIENT
  Age: 56 Year
  Sex: Female

DRUGS (3)
  1. TRIAMCINOLONE ACETONIDE RX 0.1% 3L6 [Suspect]
     Indication: DRUG ERUPTION
     Dosage: UNK
     Route: 061
  2. CLOBETASOL PROPIONATE RX 0.05% 2P1 [Suspect]
     Indication: DRUG ERUPTION
     Dosage: UNK
     Route: 061
  3. TELAPREVIR [Suspect]
     Indication: HEPATITIS C
     Dosage: 750 MG, TID
     Route: 065

REACTIONS (11)
  - Adrenal insufficiency [Recovering/Resolving]
  - Hypothalamo-pituitary disorder [Recovering/Resolving]
  - Malaise [Recovering/Resolving]
  - Fatigue [Recovering/Resolving]
  - Inhibitory drug interaction [Unknown]
  - Asthenia [Unknown]
  - Diarrhoea [Unknown]
  - Nausea [Unknown]
  - Decreased appetite [Unknown]
  - Hyponatraemia [Unknown]
  - Blood pressure systolic decreased [Recovered/Resolved]
